FAERS Safety Report 14358351 (Version 1)
Quarter: 2018Q1

REPORT INFORMATION
  Report Type: Spontaneous
  Country: US (occurrence: US)
  Receive Date: 20180105
  Receipt Date: 20180105
  Transmission Date: 20180509
  Serious: No
  Sender: FDA-Public Use
  Company Number: US-SA-2017SA205880

PATIENT
  Sex: Male

DRUGS (15)
  1. AMOXICILLIN. [Concomitant]
     Active Substance: AMOXICILLIN
     Route: 065
  2. CLOBETASOL [Concomitant]
     Active Substance: CLOBETASOL
     Route: 065
  3. DESOXIMETASONE. [Concomitant]
     Active Substance: DESOXIMETASONE
     Route: 065
  4. PANTOPRAZOLE [Concomitant]
     Active Substance: PANTOPRAZOLE
     Route: 065
  5. DUPIXENT [Suspect]
     Active Substance: DUPILUMAB
     Route: 058
  6. ATORVASTATIN [Concomitant]
     Active Substance: ATORVASTATIN
     Route: 065
  7. FLUOCINOLONE [Concomitant]
     Active Substance: FLUOCINOLONE
     Route: 065
  8. LEVOTHYROXINE. [Concomitant]
     Active Substance: LEVOTHYROXINE
     Route: 065
  9. AZATHIOPRINE. [Concomitant]
     Active Substance: AZATHIOPRINE
     Route: 065
  10. ATENOLOL. [Concomitant]
     Active Substance: ATENOLOL
     Route: 065
  11. DUPIXENT [Suspect]
     Active Substance: DUPILUMAB
     Route: 058
  12. HYDROCODONE [Concomitant]
     Active Substance: HYDROCODONE
     Route: 065
  13. BETAMETHASONE. [Concomitant]
     Active Substance: BETAMETHASONE
     Route: 065
  14. FENOFIBRATE. [Concomitant]
     Active Substance: FENOFIBRATE
     Route: 065
  15. PREDNISONE. [Concomitant]
     Active Substance: PREDNISONE
     Route: 065

REACTIONS (1)
  - Eyelid skin dryness [Unknown]
